FAERS Safety Report 4531887-X (Version None)
Quarter: 2004Q4

REPORT INFORMATION
  Report Type: 
  Country: None (occurrence: None)
  Receive Date: 20041220
  Receipt Date: 20040511
  Transmission Date: 20050328
  Serious: No
  Sender: FDA-Public Use
  Company Number: US-GLAXOSMITHKLINE-A0510397A

PATIENT
  Age: 34 Year
  Sex: Male

DRUGS (2)
  1. TRIZIVIR [Suspect]
     Indication: HIV INFECTION
     Dosage: 1TAB TWICE PER DAY
     Route: 048
     Dates: start: 20031201
  2. SUSTIVA [Concomitant]

REACTIONS (3)
  - NEPHROPATHY [None]
  - NOCTURIA [None]
  - URINARY RETENTION [None]
